FAERS Safety Report 4385418-8 (Version None)
Quarter: 2004Q2

REPORT INFORMATION
  Report Type: 
  Country: None (occurrence: None)
  Receive Date: 20040628
  Receipt Date: 20040520
  Transmission Date: 20050107
  Serious: Yes (Hospitalization, Other)
  Sender: FDA-Public Use
  Company Number: PHNR2004AU00978

PATIENT
  Age: 69 Year
  Sex: Female

DRUGS (5)
  1. ZOMETA [Suspect]
     Dosage: 4 MG, ONCE/SINGLE
     Dates: start: 20040323, end: 20040323
  2. PREDNISOLONE [Concomitant]
     Indication: ERYTHEMA NODOSUM
     Dosage: 7.5 MG, UNK
  3. PREDNISOLONE [Concomitant]
     Dosage: 25 MG, QD
  4. ZOTON [Concomitant]
  5. OSTELIN [Concomitant]

REACTIONS (6)
  - C-REACTIVE PROTEIN INCREASED [None]
  - ERYTHEMA NODOSUM [None]
  - PHARYNGOLARYNGEAL PAIN [None]
  - POLYMYALGIA [None]
  - PYREXIA [None]
  - SARCOIDOSIS [None]
